FAERS Safety Report 8361984-2 (Version None)
Quarter: 2012Q2

REPORT INFORMATION
  Report Type: 
  Country: None (occurrence: None)
  Receive Date: 20120515
  Receipt Date: 20120502
  Transmission Date: 20120825
  Serious: Yes (Other)
  Sender: FDA-Public Use
  Company Number: DK-MYLANLABS-2012S1009051

PATIENT
  Age: 75 Year
  Sex: Female

DRUGS (3)
  1. CYCLOSPORINE [Suspect]
     Indication: DERMATITIS ATOPIC
  2. MYCOPHENOLATE MOFETIL [Suspect]
     Indication: DERMATITIS ATOPIC
  3. AZATHIOPRINE [Suspect]
     Indication: DERMATITIS ATOPIC

REACTIONS (2)
  - CONDITION AGGRAVATED [None]
  - MYCOSIS FUNGOIDES [None]
